FAERS Safety Report 23708529 (Version 7)
Quarter: 2024Q2

REPORT INFORMATION
  Report Type: Spontaneous
  Country: US (occurrence: US)
  Receive Date: 20240404
  Receipt Date: 20240610
  Transmission Date: 20240716
  Serious: No
  Sender: FDA-Public Use
  Company Number: US-PFIZER INC-202400076342

PATIENT
  Age: 5 Year
  Sex: Female

DRUGS (2)
  1. GENOTROPIN [Suspect]
     Active Substance: SOMATROPIN
     Indication: Silver-Russell syndrome
     Dosage: 0.3 MG ALTERNATING WITH 0.4 MG
     Dates: start: 202303
  2. GENOTROPIN [Suspect]
     Active Substance: SOMATROPIN
     Dosage: 0.3 MG ALTERNATING WITH 0.4 MG
     Dates: start: 202303

REACTIONS (6)
  - Poor quality device used [Unknown]
  - Device leakage [Unknown]
  - Device defective [Unknown]
  - Device information output issue [Unknown]
  - Product prescribing error [Unknown]
  - Off label use [Unknown]
